FAERS Safety Report 4269699-7 (Version None)
Quarter: 2004Q1

REPORT INFORMATION
  Report Type: 
  Country: None (occurrence: None)
  Receive Date: 20040112
  Receipt Date: 20031229
  Transmission Date: 20041129
  Serious: Yes (Life-Threatening, Hospitalization)
  Sender: FDA-Public Use
  Company Number: 200313714EU

PATIENT
  Age: 78 Year
  Sex: Female

DRUGS (5)
  1. LASIX [Suspect]
     Indication: CARDIAC FAILURE
     Dosage: 20 MG/DAY PO
     Route: 048
     Dates: start: 20031110
  2. SOTALOL HCL [Suspect]
     Indication: ATRIAL FIBRILLATION
     Dosage: 360 MG/DAY PO
     Route: 048
     Dates: end: 20031112
  3. ALDACTONE [Concomitant]
  4. SINTROM [Concomitant]
  5. FLUCLOXACILLIN SODIUM (FLOXAPEN) [Concomitant]

REACTIONS (7)
  - CARDIAC FAILURE [None]
  - ELECTROCARDIOGRAM QT PROLONGED [None]
  - HYPOKALAEMIA [None]
  - HYPOMAGNESAEMIA [None]
  - SYNCOPE [None]
  - TORSADE DE POINTES [None]
  - VENTRICULAR FIBRILLATION [None]
